FAERS Safety Report 5421171-4 (Version None)
Quarter: 2007Q3

REPORT INFORMATION
  Report Type: 
  Country: None (occurrence: None)
  Receive Date: 20070719
  Receipt Date: 20070326
  Transmission Date: 20080115
  Serious: Yes (Other)
  Sender: FDA-Public Use
  Company Number: HQWYE804123FEB07

PATIENT
  Age: 62 Year
  Sex: Female
  Weight: 67.65 kg

DRUGS (1)
  1. ADVIL PM [Suspect]
     Indication: INSOMNIA
     Dosage: 2 CAPSULES X 1, ORAL
     Route: 048
     Dates: start: 20070127, end: 20070127

REACTIONS (2)
  - RASH ERYTHEMATOUS [None]
  - RASH MACULAR [None]
